FAERS Safety Report 15786200 (Version 1)
Quarter: 2019Q1

REPORT INFORMATION
  Report Type: Spontaneous
  Country: US (occurrence: US)
  Receive Date: 20190103
  Receipt Date: 20190103
  Transmission Date: 20190417
  Serious: No
  Sender: FDA-Public Use
  Company Number: US-SUNOVION-2018SUN005029

PATIENT
  Sex: Male

DRUGS (1)
  1. LATUDA [Suspect]
     Active Substance: LURASIDONE HYDROCHLORIDE
     Route: 048

REACTIONS (6)
  - Headache [Unknown]
  - Product dose omission [Unknown]
  - Feeling abnormal [Unknown]
  - Confusional state [Unknown]
  - Irritability [Unknown]
  - Visual impairment [Unknown]
